FAERS Safety Report 7088619-3 (Version None)
Quarter: 2010Q4

REPORT INFORMATION
  Report Type: 
  Country: None (occurrence: None)
  Receive Date: 20101028
  Receipt Date: 20101012
  Transmission Date: 20110411
  Serious: Yes (Death, Hospitalization)
  Sender: FDA-Public Use
  Company Number: UTC-001554

PATIENT
  Age: 43 Year
  Sex: Female

DRUGS (8)
  1. REMODULIN [Suspect]
     Indication: PULMONARY ARTERIAL HYPERTENSION
     Dosage: 54.72 UG/KG (0.038 UG/KG,1 IN 1 MIN),INTRAVENOUS
     Route: 042
     Dates: start: 20090212
  2. SUDAFED (OXYMETAZOLINE HYDROCHLORIDE) (CAPSULES) [Concomitant]
  3. CALCITRIOL (CALCITRIOL) (CAPSULES) [Concomitant]
  4. PREDNISONE [Concomitant]
  5. NEXIUM (ESOMEPRAZOLE MAGNESIUM) (CAPSULES) [Concomitant]
  6. TRACLEER [Concomitant]
  7. REVATIO (SILDENAFIL CITRATE) (TABLETS) [Concomitant]
  8. HYDROXYCHLOROQUINE (HYDROXYCHLOROQUINE) (TABLETS) [Concomitant]

REACTIONS (3)
  - DEVICE LEAKAGE [None]
  - DIARRHOEA [None]
  - INFUSION SITE INFECTION [None]
